FAERS Safety Report 17443139 (Version 1)
Quarter: 2020Q1

REPORT INFORMATION
  Report Type: Spontaneous
  Country: US (occurrence: US)
  Receive Date: 20200221
  Receipt Date: 20200221
  Transmission Date: 20200409
  Serious: No
  Sender: FDA-Public Use
  Company Number: US-GLAXOSMITHKLINE-US2020029754

PATIENT
  Age: 81 Year
  Sex: Male

DRUGS (1)
  1. ABREVA [Suspect]
     Active Substance: DOCOSANOL
     Indication: ORAL HERPES
     Dosage: UNK (I DID IT LIKE IT SAYS 10 DAY 5 TIMES A DAY)
     Dates: start: 20200207, end: 20200217

REACTIONS (1)
  - Therapeutic product effect incomplete [Unknown]
